FAERS Safety Report 18560046 (Version 2)
Quarter: 2020Q4

REPORT INFORMATION
  Report Type: Other
  Country: CN (occurrence: CN)
  Receive Date: 20201130
  Receipt Date: 20201208
  Transmission Date: 20210114
  Serious: Yes (Other)
  Sender: FDA-Public Use
  Company Number: CN-ROCHE-2722928

PATIENT

DRUGS (3)
  1. ALTEPLASE. [Suspect]
     Active Substance: ALTEPLASE
     Dosage: DOSE: 0.9MG/KG?THEN 90% OF THE DRUG WAS GIVEN, AND ALL INTRAVENOUS DRIP WAS ADMINISTERED WITHIN 1HOU
     Route: 042
  2. SODIUM CHLORIDE. [Concomitant]
     Active Substance: SODIUM CHLORIDE
     Indication: PRODUCT USED FOR UNKNOWN INDICATION
     Route: 042
  3. ALTEPLASE. [Suspect]
     Active Substance: ALTEPLASE
     Indication: CEREBRAL INFARCTION
     Dosage: DOSE: 0.9MG/KG?10% OF THE TOTAL DRUG WAS GIVEN 1 MIN BEFORE ADMINISTRATION FREQUENCY: 1, FREQUENCY U
     Route: 042

REACTIONS (2)
  - Drug ineffective [Unknown]
  - No adverse event [Unknown]
